FAERS Safety Report 4440008-3 (Version None)
Quarter: 2004Q3

REPORT INFORMATION
  Report Type: 
  Country: None (occurrence: None)
  Receive Date: 20040831
  Receipt Date: 20040818
  Transmission Date: 20050211
  Serious: Yes (Hospitalization)
  Sender: FDA-Public Use
  Company Number: 2004051554

PATIENT
  Age: 26 Year
  Sex: Female
  Weight: 98 kg

DRUGS (1)
  1. ZIPRASIDONE(CAPS) (ZIPRASIDONE) [Suspect]
     Indication: SCHIZOPHRENIA
     Dosage: 240 MG (160 MG, BID  INTERVAL: DAILY), ORAL
     Route: 048
     Dates: start: 20040608

REACTIONS (2)
  - GALACTORRHOEA [None]
  - HYPERPROLACTINAEMIA [None]
